FAERS Safety Report 24284712 (Version 2)
Quarter: 2024Q3

REPORT INFORMATION
  Report Type: Report from Study
  Country: US (occurrence: US)
  Receive Date: 20240905
  Receipt Date: 20240917
  Transmission Date: 20241017
  Serious: Yes (Other)
  Sender: AMGEN
  Company Number: US-AMGEN-USASL2024173452

PATIENT
  Age: 64 Year
  Sex: Female

DRUGS (1)
  1. EVENITY [Suspect]
     Active Substance: ROMOSOZUMAB-AQQG
     Indication: Osteoporosis
     Dosage: 60 MILLIGRAM, QMO
     Route: 058
     Dates: start: 20240628

REACTIONS (12)
  - Blood pressure decreased [Unknown]
  - Coronary artery stenosis [Unknown]
  - Pain in extremity [Unknown]
  - Myalgia [Unknown]
  - Insomnia [Unknown]
  - Headache [Unknown]
  - Arthralgia [Unknown]
  - Blood calcium decreased [Unknown]
  - Pain in jaw [Not Recovered/Not Resolved]
  - Injury [Unknown]
  - Incorrect dose administered [Unknown]
  - Computerised tomogram heart abnormal [Unknown]

NARRATIVE: CASE EVENT DATE: 20240101
